FAERS Safety Report 24454791 (Version 2)
Quarter: 2024Q4

REPORT INFORMATION
  Report Type: Report from Study
  Country: US (occurrence: US)
  Receive Date: 20241017
  Receipt Date: 20241018
  Transmission Date: 20250115
  Serious: No
  Sender: ROCHE
  Company Number: US-ROCHE-3466418

PATIENT
  Age: 3 Year
  Sex: Female

DRUGS (3)
  1. RITUXAN [Suspect]
     Active Substance: RITUXIMAB
     Indication: Nephrotic syndrome
     Dosage: DOSE 10 MG, INFUSE 500MG INTRAVENOUSLY EVERY 2 MONTH(S) FOR 2 DOSES, THEN 500MG INTRAVENOUSLY EVERY
     Route: 041
     Dates: start: 20231201
  2. RITUXAN [Suspect]
     Active Substance: RITUXIMAB
     Indication: Hypoalbuminaemia
     Route: 041
  3. PREDNISONE [Concomitant]
     Active Substance: PREDNISONE

REACTIONS (3)
  - Illness [Unknown]
  - Vomiting [Unknown]
  - Off label use [Unknown]
